FAERS Safety Report 7418037-7 (Version None)
Quarter: 2011Q2

REPORT INFORMATION
  Report Type: 
  Country: None (occurrence: None)
  Receive Date: 20110412
  Receipt Date: 20110412
  Transmission Date: 20111010
  Serious: Yes (Hospitalization, Disabling)
  Sender: FDA-Public Use
  Company Number: None

PATIENT
  Age: 71 Year
  Sex: Male
  Weight: 95.2554 kg

DRUGS (10)
  1. LEVITRA [Suspect]
     Indication: ERECTILE DYSFUNCTION
     Dosage: ONE TABLET AS NEEDED DAILY PO
     Route: 048
     Dates: start: 20081021, end: 20101001
  2. ASCORBIC ACID [Concomitant]
  3. ZETIA [Concomitant]
  4. BENAZEPRIL HYDROCHLORIDE [Concomitant]
  5. NAPROXEN (ALEVE) [Concomitant]
  6. MULTIPLE VITAMIN [Concomitant]
  7. ASPIRIN [Concomitant]
  8. PRAVASTATIN [Concomitant]
  9. CIALIS [Concomitant]
  10. VIAGRA [Suspect]
     Indication: ERECTILE DYSFUNCTION
     Dosage: ONE TABLET AS NEEDED DAILY PO
     Route: 048
     Dates: start: 20101008, end: 20101018

REACTIONS (3)
  - VERTIGO [None]
  - DISORIENTATION [None]
  - DEAFNESS [None]
